FAERS Safety Report 8170037-8 (Version None)
Quarter: 2012Q1

REPORT INFORMATION
  Report Type: 
  Country: None (occurrence: None)
  Receive Date: 20120228
  Receipt Date: 20120221
  Transmission Date: 20120608
  Serious: Yes (Disabling)
  Sender: FDA-Public Use
  Company Number: CA-UCBSA-038089

PATIENT
  Age: 74 Year
  Sex: Female

DRUGS (7)
  1. CIMZIA [Suspect]
     Route: 058
     Dates: start: 20101220
  2. MELOXICAM [Concomitant]
  3. LEFLUNOMIDE [Concomitant]
     Indication: RHEUMATOID ARTHRITIS
     Dosage: 10 MG
     Route: 048
  4. METFORMIN HCL [Suspect]
     Indication: TYPE 2 DIABETES MELLITUS
     Dosage: DOSE PER INTAKE:400 MG
     Route: 048
  5. CIMZIA [Suspect]
     Indication: RHEUMATOID ARTHRITIS
     Route: 058
     Dates: start: 20110201
  6. GLYBERIDE [Suspect]
     Indication: TYPE 2 DIABETES MELLITUS
  7. WELLBUTRIN [Suspect]
     Indication: DEPRESSION
     Dosage: UNKNOWN DOSE

REACTIONS (1)
  - UPPER LIMB FRACTURE [None]
